FAERS Safety Report 24272217 (Version 1)
Quarter: 2024Q3

REPORT INFORMATION
  Report Type: Spontaneous
  Country: US (occurrence: US)
  Receive Date: 20240902
  Receipt Date: 20240902
  Transmission Date: 20241017
  Serious: Yes (Other)
  Sender: DR REDDYS
  Company Number: US-DRL-USA-SPO/USA/24/0012550

PATIENT
  Age: 49 Year
  Sex: Female

DRUGS (4)
  1. OMEPRAZOLE [Suspect]
     Active Substance: OMEPRAZOLE
     Indication: Uterine cancer
  2. PEMBROLIZUMAB [Suspect]
     Active Substance: PEMBROLIZUMAB
     Indication: Uterine cancer
  3. LENVATINIB [Suspect]
     Active Substance: LENVATINIB
     Indication: Uterine cancer
  4. ASPIRIN [Suspect]
     Active Substance: ASPIRIN
     Indication: Uterine cancer

REACTIONS (7)
  - Acute kidney injury [Recovered/Resolved]
  - Renal tubular necrosis [Recovered/Resolved]
  - Renal failure [Recovered/Resolved]
  - Kidney fibrosis [Recovered/Resolved]
  - Proteinuria [Recovered/Resolved]
  - Focal segmental glomerulosclerosis [Recovered/Resolved]
  - Product use in unapproved indication [Recovered/Resolved]
